FAERS Safety Report 7134389-X (Version None)
Quarter: 2010Q4

REPORT INFORMATION
  Report Type: 
  Country: None (occurrence: None)
  Receive Date: 20101203
  Receipt Date: 20101122
  Transmission Date: 20110411
  Serious: Yes (Other)
  Sender: FDA-Public Use
  Company Number: PHHY2010CA80349

PATIENT
  Sex: Female

DRUGS (1)
  1. ACLASTA [Suspect]

REACTIONS (1)
  - DENTAL OPERATION [None]
